FAERS Safety Report 10175116 (Version 1)
Quarter: 2014Q2

REPORT INFORMATION
  Report Type: Report from Study
  Country: BR (occurrence: BR)
  Receive Date: 20140515
  Receipt Date: 20140515
  Transmission Date: 20141212
  Serious: Yes (Hospitalization, Other)
  Sender: FDA-Public Use
  Company Number: PHHY2014BR059014

PATIENT
  Age: 57 Year
  Sex: Male
  Weight: 82 kg

DRUGS (5)
  1. DIOVAN HCT [Suspect]
     Dosage: 1 DF, (160/ 12,5 MG) IN THE MORNING
     Route: 048
     Dates: start: 2012, end: 2012
  2. DIOVAN AMLO FIX [Suspect]
     Indication: HYPERTENSION
     Dosage: 1 DF, (160/10 MG) IN THE MORNING
     Route: 048
     Dates: start: 2010
  3. ATENOLOL [Concomitant]
     Indication: MYOCARDIAL INFARCTION
     Dosage: UNK UKN, UNK
     Dates: start: 2013
  4. GLIBENCLAMIDE [Concomitant]
     Indication: DIABETES MELLITUS
     Dosage: UNK UKN, UNK
     Dates: start: 2005
  5. METFORMIN HYDROCHLORIDE [Concomitant]
     Indication: DIABETES MELLITUS
     Dosage: 850 MG, UNK

REACTIONS (6)
  - Gastrointestinal carcinoma [Recovering/Resolving]
  - Abdominal hernia [Recovering/Resolving]
  - Blood pressure increased [Recovering/Resolving]
  - Renal cyst [Recovering/Resolving]
  - Abdominal distension [Recovering/Resolving]
  - Visual impairment [Recovering/Resolving]
